FAERS Safety Report 10043316 (Version 1)
Quarter: 2014Q1

REPORT INFORMATION
  Report Type: Spontaneous
  Country: US (occurrence: None)
  Receive Date: 20140327
  Receipt Date: 20140327
  Transmission Date: 20141002
  Serious: Yes (Disabling, Other)
  Sender: FDA-Public Use
  Company Number: None

PATIENT
  Age: 9 Year
  Sex: Male
  Weight: 34.93 kg

DRUGS (1)
  1. QVAR [Suspect]
     Indication: ASTHMA
     Route: 055
     Dates: start: 20130404, end: 20131201

REACTIONS (7)
  - Crying [None]
  - Anger [None]
  - Mood swings [None]
  - Headache [None]
  - Stomatitis [None]
  - Acne [None]
  - Pharyngeal disorder [None]
